FAERS Safety Report 7536986-6 (Version None)
Quarter: 2011Q2

REPORT INFORMATION
  Report Type: 
  Country: None (occurrence: None)
  Receive Date: 20110609
  Receipt Date: 20110607
  Transmission Date: 20111010
  Serious: Yes (Hospitalization, Congenital Anomaly, Other)
  Sender: FDA-Public Use
  Company Number: GXKR2011DE01940

PATIENT
  Sex: Male
  Weight: 2.6 kg

DRUGS (6)
  1. OMEPRAZOLE [Suspect]
     Dosage: UNK MG, UNK, 7.-10.6 GW
     Route: 064
  2. LYRICA [Suspect]
     Dosage: UNK MG, UNK
     Route: 064
  3. NOVALGIN                                /SCH/ [Suspect]
     Indication: PAIN
     Dosage: 2250 MG, QD
  4. FLUOXETINE HCL [Suspect]
     Dosage: UNK MG, UNK, 0.-10.6 GW
     Route: 064
  5. INSULIN HUMAN [Concomitant]
     Dosage: UNK UKN, UNK
     Route: 064
     Dates: end: 20091218
  6. FEMIBION [Concomitant]
     Dosage: UNK MG, UNK
     Route: 064

REACTIONS (6)
  - CONGENITAL AORTIC VALVE STENOSIS [None]
  - CONGENITAL AORTIC VALVE INCOMPETENCE [None]
  - CYANOSIS NEONATAL [None]
  - DRUG EXPOSURE DURING PREGNANCY [None]
  - SMALL FOR DATES BABY [None]
  - ATRIAL SEPTAL DEFECT [None]
